FAERS Safety Report 5635280-8 (Version None)
Quarter: 2008Q1

REPORT INFORMATION
  Report Type: 
  Country: None (occurrence: None)
  Receive Date: 20080222
  Receipt Date: 20080210
  Transmission Date: 20080703
  Serious: Yes (Hospitalization, Other)
  Sender: FDA-Public Use
  Company Number: AU-PFIZER INC-2007105903

PATIENT
  Sex: Female

DRUGS (13)
  1. CHANTIX [Suspect]
     Indication: EX-SMOKER
     Route: 048
  2. ALL OTHER THERAPEUTIC PRODUCTS [Suspect]
  3. EFFEXOR [Concomitant]
  4. SEROQUEL [Concomitant]
  5. VALIUM [Concomitant]
  6. KALMA [Concomitant]
  7. ALPRAZOLAM [Concomitant]
     Indication: ANXIETY
     Dates: start: 20070101, end: 20071204
  8. AVANZA [Concomitant]
     Indication: ANXIETY
     Route: 048
     Dates: start: 20070101, end: 20071204
  9. LEXAPRO [Concomitant]
     Route: 048
     Dates: start: 20070101, end: 20071204
  10. ATROVENT [Concomitant]
  11. MOBIC [Concomitant]
  12. NYSTATIN [Concomitant]
  13. VALPROATE SODIUM [Concomitant]
     Indication: BIPOLAR DISORDER
     Route: 048
     Dates: start: 20070101, end: 20071204

REACTIONS (7)
  - AGGRESSION [None]
  - AGITATION [None]
  - DEPRESSED MOOD [None]
  - HOMICIDAL IDEATION [None]
  - INTENTIONAL OVERDOSE [None]
  - POOR QUALITY SLEEP [None]
  - SUICIDE ATTEMPT [None]
